FAERS Safety Report 10583735 (Version 2)
Quarter: 2014Q4

REPORT INFORMATION
  Report Type: Spontaneous
  Country: JP (occurrence: JP)
  Receive Date: 20141114
  Receipt Date: 20141114
  Transmission Date: 20150529
  Serious: Yes (Hospitalization, Other)
  Sender: FDA-Public Use
  Company Number: PHHY2012JP134140

PATIENT
  Age: 54 Year
  Sex: Female
  Weight: 37 kg

DRUGS (5)
  1. RASURITEK [Concomitant]
     Active Substance: RASBURICASE
     Indication: PRODUCT USED FOR UNKNOWN INDICATION
     Dosage: UNK UKN, UNK
     Route: 065
     Dates: start: 20120723, end: 20120726
  2. METHYLPREDNISOLONE. [Concomitant]
     Active Substance: METHYLPREDNISOLONE
     Indication: PRODUCT USED FOR UNKNOWN INDICATION
     Dosage: 500 MG, UNK
     Route: 065
     Dates: start: 20120723
  3. GLIVEC [Suspect]
     Active Substance: IMATINIB MESYLATE
     Dosage: 200 MG, DAILY
     Route: 065
     Dates: end: 201207
  4. PSL INFUSION [Concomitant]
     Indication: PRODUCT USED FOR UNKNOWN INDICATION
     Dosage: 50 MG, DAILY
     Route: 065
     Dates: start: 20120723
  5. GLIVEC [Suspect]
     Active Substance: IMATINIB MESYLATE
     Indication: CHRONIC MYELOID LEUKAEMIA
     Dosage: 400 MG,
     Route: 065
     Dates: start: 20120328

REACTIONS (13)
  - Arthralgia [Unknown]
  - Inferior vena cava dilatation [Unknown]
  - Weight increased [Recovering/Resolving]
  - Pyrexia [Unknown]
  - Feeling abnormal [Unknown]
  - Eyelid oedema [Recovering/Resolving]
  - Blast cell crisis [Recovering/Resolving]
  - Pleural effusion [Unknown]
  - Pulmonary hypertension [Unknown]
  - Lung disorder [Not Recovered/Not Resolved]
  - Anaemia [Recovering/Resolving]
  - White blood cell count increased [Unknown]
  - Dyspnoea [Not Recovered/Not Resolved]

NARRATIVE: CASE EVENT DATE: 201203
